FAERS Safety Report 4971106-3 (Version None)
Quarter: 2006Q1

REPORT INFORMATION
  Report Type: 
  Country: None (occurrence: None)
  Receive Date: 20060228
  Receipt Date: 20050826
  Transmission Date: 20060701
  Serious: Yes (Disabling, Other)
  Sender: FDA-Public Use
  Company Number: 002#2#2005-00322

PATIENT
  Sex: Female

DRUGS (3)
  1. REGLAN [Suspect]
     Indication: GASTROOESOPHAGEAL REFLUX DISEASE
     Dosage: 10 MG,4 IN 1 D, ORAL
     Route: 048
     Dates: start: 19991101, end: 20020329
  2. LANSOPRAZOLE [Concomitant]
  3. BUSPIRONE [Concomitant]

REACTIONS (1)
  - TARDIVE DYSKINESIA [None]
